FAERS Safety Report 9527439 (Version 4)
Quarter: 2016Q2

REPORT INFORMATION
  Report Type: Spontaneous
  Country: AT (occurrence: AT)
  Receive Date: 20130917
  Receipt Date: 20160415
  Transmission Date: 20160815
  Serious: Yes (Other)
  Sender: FDA-Public Use
  Company Number: AT-AMGEN-AUTSP2013063865

PATIENT
  Age: 78 Year
  Sex: Female
  Weight: 54 kg

DRUGS (1)
  1. PROLIA [Suspect]
     Active Substance: DENOSUMAB
     Indication: OSTEOPOROSIS
     Dosage: 60 UNK, UNK
     Route: 058
     Dates: start: 201301

REACTIONS (3)
  - Osteonecrosis of jaw [Not Recovered/Not Resolved]
  - Glaucoma [Unknown]
  - Sinusitis [Not Recovered/Not Resolved]
